FAERS Safety Report 5359893-6 (Version None)
Quarter: 2007Q2

REPORT INFORMATION
  Report Type: 
  Country: None (occurrence: None)
  Receive Date: 20070531
  Receipt Date: 20060727
  Transmission Date: 20071010
  Serious: Yes (Other)
  Sender: FDA-Public Use
  Company Number: WAES 0607USA05449

PATIENT
  Age: 30 Year
  Sex: Female

DRUGS (5)
  1. EMEND [Suspect]
     Indication: PROPHYLAXIS
     Dosage: 125 MG/1X/PO
     Route: 048
     Dates: start: 20060626, end: 20060626
  2. PLATINOL [Concomitant]
  3. ZOFRAN [Concomitant]
  4. DEXAMETHASONE SODIUM PHOSPHATE [Concomitant]
  5. FLUOROURACIL [Concomitant]

REACTIONS (2)
  - NAUSEA [None]
  - VOMITING [None]
